FAERS Safety Report 7859765-9 (Version None)
Quarter: 2011Q4

REPORT INFORMATION
  Report Type: 
  Country: None (occurrence: None)
  Receive Date: 20111026
  Receipt Date: 20111026
  Transmission Date: 20120403
  Serious: Yes (Hospitalization)
  Sender: FDA-Public Use
  Company Number: None

PATIENT
  Age: 38 Year
  Sex: Male
  Weight: 55.3 kg

DRUGS (2)
  1. ATENOLOL [Concomitant]
  2. TAPAZOLE [Suspect]
     Indication: HYPERTHYROIDISM
     Dosage: 20 MG BID ORAL
     Route: 048
     Dates: start: 20110728, end: 20110913

REACTIONS (1)
  - HEPATITIS ACUTE [None]
